FAERS Safety Report 15483702 (Version 2)
Quarter: 2018Q4

REPORT INFORMATION
  Report Type: Spontaneous
  Country: GB (occurrence: GB)
  Receive Date: 20181010
  Receipt Date: 20181119
  Transmission Date: 20190205
  Serious: Yes (Other)
  Sender: FDA-Public Use
  Company Number: GB-OTSUKA-2018_032973

PATIENT

DRUGS (6)
  1. JINARC [Suspect]
     Active Substance: TOLVAPTAN
     Indication: CONGENITAL CYSTIC KIDNEY DISEASE
     Dosage: 90 MG, UNK (MORNING)
     Route: 065
  2. JINARC [Suspect]
     Active Substance: TOLVAPTAN
     Dosage: 30 MG, UNK (EVENING)
     Route: 065
  3. JINARC [Suspect]
     Active Substance: TOLVAPTAN
     Dosage: 30 MG, UNK (EVENING)
     Route: 065
  4. JINARC [Suspect]
     Active Substance: TOLVAPTAN
     Dosage: 30 MG, UNK (EVENING)
     Route: 065
  5. JINARC [Suspect]
     Active Substance: TOLVAPTAN
     Dosage: 45 MG, UNK (MORNING)
     Route: 065
  6. JINARC [Suspect]
     Active Substance: TOLVAPTAN
     Dosage: 60 MG, UNK (MORNING)
     Route: 065

REACTIONS (1)
  - Surgery [Unknown]
